FAERS Safety Report 19745007 (Version 1)
Quarter: 2021Q3

REPORT INFORMATION
  Report Type: Spontaneous
  Country: US (occurrence: US)
  Receive Date: 20210825
  Receipt Date: 20210825
  Transmission Date: 20211014
  Serious: Yes (Other)
  Sender: FDA-Public Use
  Company Number: US-SA-2021SA279777

PATIENT
  Age: 68 Year
  Sex: Male

DRUGS (3)
  1. PREDNISONE. [Suspect]
     Active Substance: PREDNISONE
     Dosage: 10 MG, QD
     Dates: start: 202007
  2. MYCOPHENOLATE [Concomitant]
     Active Substance: MYCOPHENOLIC ACID
     Dosage: 3000 MG, QD
  3. DUPIXENT [Suspect]
     Active Substance: DUPILUMAB
     Indication: PEMPHIGOID
     Dosage: 600 MG, 1X
     Dates: start: 20210809, end: 20210809

REACTIONS (10)
  - Blister [Recovered/Resolved]
  - Erythema [Unknown]
  - Rash erythematous [Recovered/Resolved]
  - Stress [Unknown]
  - Pruritus [Recovered/Resolved]
  - Skin exfoliation [Unknown]
  - Drug effective for unapproved indication [Unknown]
  - Product use in unapproved indication [Unknown]
  - Contusion [Unknown]
  - Skin atrophy [Unknown]

NARRATIVE: CASE EVENT DATE: 2021
